FAERS Safety Report 8947447 (Version 2)
Quarter: 2012Q4

REPORT INFORMATION
  Report Type: 
  Country: US (occurrence: US)
  Receive Date: 20121205
  Receipt Date: 20121212
  Transmission Date: 20130627
  Serious: Yes (Hospitalization)
  Sender: FDA-Public Use
  Company Number: US-ASTRAZENECA-2012SE89647

PATIENT
  Age: 19 Year
  Sex: Male
  Weight: 79.4 kg

DRUGS (16)
  1. SEROQUEL XR [Suspect]
     Indication: PSYCHOTIC DISORDER
     Route: 048
     Dates: start: 201203, end: 2012
  2. SEROQUEL XR [Suspect]
     Indication: SLEEP DISORDER
     Route: 048
     Dates: start: 201203, end: 2012
  3. SEROQUEL XR [Suspect]
     Indication: AGITATION
     Route: 048
     Dates: start: 201203, end: 2012
  4. SEROQUEL XR [Suspect]
     Indication: PSYCHOTIC DISORDER
     Route: 048
     Dates: start: 2012
  5. SEROQUEL XR [Suspect]
     Indication: SLEEP DISORDER
     Route: 048
     Dates: start: 2012
  6. SEROQUEL XR [Suspect]
     Indication: AGITATION
     Route: 048
     Dates: start: 2012
  7. SEROQUEL XR [Suspect]
     Indication: PSYCHOTIC DISORDER
     Route: 048
     Dates: start: 2012
  8. SEROQUEL XR [Suspect]
     Indication: SLEEP DISORDER
     Route: 048
     Dates: start: 2012
  9. SEROQUEL XR [Suspect]
     Indication: AGITATION
     Route: 048
     Dates: start: 2012
  10. SEROQUEL XR [Suspect]
     Indication: PSYCHOTIC DISORDER
     Route: 048
     Dates: start: 2012
  11. SEROQUEL XR [Suspect]
     Indication: SLEEP DISORDER
     Route: 048
     Dates: start: 2012
  12. SEROQUEL XR [Suspect]
     Indication: AGITATION
     Route: 048
     Dates: start: 2012
  13. SEROQUEL XR [Suspect]
     Indication: PSYCHOTIC DISORDER
     Route: 048
     Dates: start: 2012
  14. SEROQUEL XR [Suspect]
     Indication: SLEEP DISORDER
     Route: 048
     Dates: start: 2012
  15. SEROQUEL XR [Suspect]
     Indication: AGITATION
     Route: 048
     Dates: start: 2012
  16. TRAZODONE [Concomitant]

REACTIONS (9)
  - Agitation [Unknown]
  - Aggression [Unknown]
  - Hallucination [Unknown]
  - Physical assault [Unknown]
  - Aggression [Unknown]
  - Anger [Unknown]
  - Adverse drug reaction [Unknown]
  - Drug ineffective [Unknown]
  - Off label use [Unknown]
